FAERS Safety Report 12692217 (Version 3)
Quarter: 2020Q2

REPORT INFORMATION
  Report Type: Report from Study
  Country: CA (occurrence: CA)
  Receive Date: 20160828
  Receipt Date: 20200417
  Transmission Date: 20200713
  Serious: Yes (Other)
  Sender: FDA-Public Use
  Company Number: PHHY2016CA116772

PATIENT
  Age: 70 Year
  Sex: Male

DRUGS (6)
  1. SANDOSTATIN LAR DEPOT [Suspect]
     Active Substance: OCTREOTIDE ACETATE
     Dosage: 40 MG, QMO (EVERY 28 DAY)
     Route: 030
     Dates: start: 201808
  2. SANDOSTATIN LAR DEPOT [Suspect]
     Active Substance: OCTREOTIDE ACETATE
     Dosage: 30 MG, QMO
     Route: 030
  3. SANDOSTATIN LAR DEPOT [Suspect]
     Active Substance: OCTREOTIDE ACETATE
     Indication: CARCINOID TUMOUR OF THE SMALL BOWEL
     Dosage: 30 MG, QMO (EVERY 4 WEEKS, EVERY 28 DAYS)
     Route: 030
     Dates: start: 20160823
  4. SYNTHROID [Concomitant]
     Active Substance: LEVOTHYROXINE SODIUM
     Indication: PRODUCT USED FOR UNKNOWN INDICATION
     Route: 065
  5. SANDOSTATIN [Suspect]
     Active Substance: OCTREOTIDE ACETATE
     Indication: CARCINOID TUMOUR OF THE SMALL BOWEL
     Dosage: UNK (FOR 7 DAYS)
     Route: 058
     Dates: start: 20160815, end: 20160821
  6. PANTOLOC [Concomitant]
     Active Substance: PANTOPRAZOLE SODIUM
     Indication: PRODUCT USED FOR UNKNOWN INDICATION
     Dosage: UNK
     Route: 065

REACTIONS (43)
  - Metastasis [Unknown]
  - Dry eye [Recovered/Resolved]
  - Musculoskeletal chest pain [Not Recovered/Not Resolved]
  - Eye pruritus [Unknown]
  - Osteoarthritis [Unknown]
  - Back injury [Unknown]
  - Injection site eczema [Unknown]
  - Injection site hypersensitivity [Unknown]
  - Pyrexia [Recovering/Resolving]
  - Rash [Unknown]
  - Flatulence [Unknown]
  - Back pain [Unknown]
  - Musculoskeletal pain [Unknown]
  - Hypersensitivity [Unknown]
  - Nausea [Recovered/Resolved]
  - Myalgia [Not Recovered/Not Resolved]
  - Bone pain [Unknown]
  - Injection site pain [Unknown]
  - Blood pressure systolic increased [Unknown]
  - Malignant neoplasm progression [Unknown]
  - Haemorrhoids [Unknown]
  - Faeces discoloured [Unknown]
  - Eye pain [Recovered/Resolved]
  - Influenza [Unknown]
  - Tendonitis [Unknown]
  - Acne [Unknown]
  - Hypotonia [Recovering/Resolving]
  - Asthenia [Unknown]
  - Gait disturbance [Unknown]
  - Injection site discomfort [Unknown]
  - Pulmonary congestion [Recovering/Resolving]
  - Cough [Unknown]
  - Nasal congestion [Recovering/Resolving]
  - Muscular weakness [Unknown]
  - Fall [Unknown]
  - Musculoskeletal stiffness [Unknown]
  - Body temperature decreased [Unknown]
  - Fatigue [Unknown]
  - Influenza like illness [Recovering/Resolving]
  - Weight increased [Unknown]
  - Productive cough [Unknown]
  - Pruritus [Unknown]
  - Injection site induration [Unknown]

NARRATIVE: CASE EVENT DATE: 20160815
